FAERS Safety Report 15383816 (Version 6)
Quarter: 2025Q3

REPORT INFORMATION
  Report Type: Report from Study
  Country: JP (occurrence: JP)
  Receive Date: 20180913
  Receipt Date: 20250831
  Transmission Date: 20251020
  Serious: Yes (Death, Hospitalization, Other)
  Sender: ABBVIE
  Company Number: JP-TAKEDA-2018TJP022938

PATIENT
  Age: 71 Year
  Sex: Male
  Weight: 65 kg

DRUGS (7)
  1. LEUPROLIDE ACETATE [Suspect]
     Active Substance: LEUPROLIDE ACETATE
     Indication: Bulbospinal muscular atrophy congenital
     Dosage: 11.25 MG, Q3MONTHS
     Route: 058
     Dates: start: 20171024
  2. NAFTOPIDIL [Suspect]
     Active Substance: NAFTOPIDIL
     Indication: Product used for unknown indication
     Route: 048
  3. NAFTOPIDIL [Suspect]
     Active Substance: NAFTOPIDIL
     Indication: Product used for unknown indication
     Route: 048
     Dates: start: 20180903, end: 20180903
  4. MICARDIS [Concomitant]
     Active Substance: TELMISARTAN
     Indication: Product used for unknown indication
     Route: 048
  5. METGLUCO [Concomitant]
     Active Substance: METFORMIN HYDROCHLORIDE
     Indication: Product used for unknown indication
     Route: 048
  6. ADALAT [Concomitant]
     Active Substance: NIFEDIPINE
     Indication: Product used for unknown indication
     Route: 048
  7. Magnesium oxide e [Concomitant]
     Indication: Product used for unknown indication
     Route: 048

REACTIONS (4)
  - Pneumonia [Fatal]
  - Syncope [Recovered/Resolved]
  - Colitis ischaemic [Recovered/Resolved]
  - Hypotension [Recovered/Resolved]

NARRATIVE: CASE EVENT DATE: 20180903
